FAERS Safety Report 25931932 (Version 1)
Quarter: 2025Q4

REPORT INFORMATION
  Report Type: Spontaneous
  Country: US (occurrence: US)
  Receive Date: 20251016
  Receipt Date: 20251016
  Transmission Date: 20260118
  Serious: No
  Sender: BRACCO
  Company Number: US-BRACCO-2025US04376

PATIENT
  Age: 53 Year
  Sex: Male

DRUGS (1)
  1. VUEWAY [Suspect]
     Active Substance: GADOPICLENOL
     Indication: Magnetic resonance imaging heart
     Dosage: 14 ML, SINGLE
     Route: 042
     Dates: start: 20250625, end: 20250625

REACTIONS (2)
  - Rash [Recovered/Resolved]
  - Increased dose administered [Unknown]

NARRATIVE: CASE EVENT DATE: 20250625
